FAERS Safety Report 8536163-6 (Version None)
Quarter: 2012Q3

REPORT INFORMATION
  Report Type: 
  Country: None (occurrence: None)
  Receive Date: 20120725
  Receipt Date: 20120711
  Transmission Date: 20120928
  Serious: No
  Sender: FDA-Public Use
  Company Number: JP-ELI_LILLY_AND_COMPANY-JP201206007966

PATIENT
  Age: 48 Year
  Sex: Male
  Weight: 78 kg

DRUGS (8)
  1. CYMBALTA [Suspect]
     Dosage: 20 MG, BID
     Route: 048
     Dates: start: 20110608, end: 20110705
  2. FLUVOXAMINE MALEATE [Concomitant]
     Dosage: UNK
     Route: 048
  3. AMLODIPINE [Concomitant]
     Indication: HYPERTENSION
     Dosage: 2.5 MG, BID
     Route: 048
     Dates: start: 20110510
  4. CYMBALTA [Suspect]
     Dosage: 20 MG, TID
     Route: 048
     Dates: start: 20110706, end: 20120327
  5. LOSARTAN POTASSIUM [Concomitant]
     Indication: HYPERTENSION
     Dosage: 50 MG, QD
     Route: 048
     Dates: start: 20110607
  6. RAMELTEON [Concomitant]
     Indication: INSOMNIA
     Dosage: 8 MG, QD
     Route: 048
     Dates: start: 20110510
  7. CYMBALTA [Suspect]
     Indication: DEPRESSION
     Dosage: 20 MG, QD
     Route: 048
     Dates: start: 20110524, end: 20110607
  8. ZOLPIDEM [Concomitant]
     Indication: INSOMNIA
     Dosage: 10 MG, QD
     Route: 048
     Dates: start: 20110414

REACTIONS (1)
  - MANIA [None]
